FAERS Safety Report 17904338 (Version 2)
Quarter: 2020Q3

REPORT INFORMATION
  Report Type: Report from Study
  Country: None (occurrence: US)
  Receive Date: 20200617
  Receipt Date: 20200713
  Transmission Date: 20201103
  Serious: Yes (Other)
  Sender: FDA-Public Use
  Company Number: US-ABBVIE-20K-163-3331697-00

PATIENT
  Sex: Female

DRUGS (1)
  1. HUMIRA [Suspect]
     Active Substance: ADALIMUMAB
     Indication: PSORIASIS
     Dosage: CITRATE FREE
     Route: 058

REACTIONS (5)
  - Systemic lupus erythematosus [Unknown]
  - Psoriasis [Recovering/Resolving]
  - Lung disorder [Unknown]
  - Anxiety [Unknown]
  - Dyspnoea [Unknown]
